FAERS Safety Report 4643992-8 (Version None)
Quarter: 2005Q2

REPORT INFORMATION
  Report Type: 
  Country: None (occurrence: None)
  Receive Date: 20050425
  Receipt Date: 20050415
  Transmission Date: 20051028
  Serious: Yes (Hospitalization)
  Sender: FDA-Public Use
  Company Number: PHNU2005DE01542

PATIENT
  Age: 40 Year
  Sex: Female
  Weight: 80 kg

DRUGS (2)
  1. SANDIMMUNE [Suspect]
     Indication: RENAL TRANSPLANT
     Dosage: 175 MG/DAY
     Route: 048
     Dates: end: 20030929
  2. SANDIMMUNE [Suspect]
     Dosage: 150 MG/DAY
     Route: 048
     Dates: start: 20030930

REACTIONS (4)
  - BLOOD CREATININE INCREASED [None]
  - ESCHERICHIA URINARY TRACT INFECTION [None]
  - GLOMERULONEPHRITIS MEMBRANOUS [None]
  - NEPHROPATHY TOXIC [None]
